FAERS Safety Report 5723497-3 (Version None)
Quarter: 2008Q2

REPORT INFORMATION
  Report Type: 
  Country: None (occurrence: None)
  Receive Date: 20080425
  Receipt Date: 20080416
  Transmission Date: 20081010
  Serious: No
  Sender: FDA-Public Use
  Company Number: 2008-173556-NL

PATIENT
  Age: 24 Year
  Sex: Female

DRUGS (1)
  1. ETONOGESTREL [Suspect]
     Indication: CONTRACEPTION
     Dosage: DF
     Dates: end: 20071211

REACTIONS (1)
  - PETIT MAL EPILEPSY [None]
